FAERS Safety Report 14121723 (Version 1)
Quarter: 2017Q4

REPORT INFORMATION
  Report Type: Spontaneous
  Country: US (occurrence: US)
  Receive Date: 20171024
  Receipt Date: 20171024
  Transmission Date: 20180321
  Serious: Yes (Other)
  Sender: FDA-Public Use
  Company Number: US-GILEAD-2017-0300321

PATIENT
  Sex: Male
  Weight: 85.71 kg

DRUGS (10)
  1. MVI                                /01825701/ [Concomitant]
     Active Substance: VITAMINS
  2. HARVONI [Suspect]
     Active Substance: LEDIPASVIR\SOFOSBUVIR
     Indication: CHRONIC HEPATITIS C
     Dosage: UNK
     Route: 065
     Dates: start: 20170216, end: 20170412
  3. METHOCARBAMOL. [Concomitant]
     Active Substance: METHOCARBAMOL
  4. ABSORBASE [Concomitant]
     Active Substance: EMOLLIENTS
  5. METOPROLOL. [Concomitant]
     Active Substance: METOPROLOL
  6. DESCOVY [Concomitant]
     Active Substance: EMTRICITABINE\TENOFOVIR ALAFENAMIDE FUMARATE
  7. DOLUTEGRAVIR [Concomitant]
     Active Substance: DOLUTEGRAVIR
  8. CLINDAMYCIN. [Concomitant]
     Active Substance: CLINDAMYCIN
  9. HYDROCERIN CREAM [Concomitant]
  10. TYLENOL [Concomitant]
     Active Substance: ACETAMINOPHEN

REACTIONS (6)
  - Hepatitis C [Unknown]
  - Pain [Unknown]
  - HIV infection [Unknown]
  - Hypertension [Unknown]
  - Treatment failure [Unknown]
  - Drug ineffective [Unknown]
